FAERS Safety Report 14565595 (Version 1)
Quarter: 2018Q1

REPORT INFORMATION
  Report Type: Spontaneous
  Country: US (occurrence: US)
  Receive Date: 20180223
  Receipt Date: 20180223
  Transmission Date: 20180509
  Serious: No
  Sender: FDA-Public Use
  Company Number: US-LUPIN PHARMACEUTICALS INC.-2017-07366

PATIENT
  Sex: Female

DRUGS (1)
  1. VANCOMYCIN HYDROCHLORIDE CAPSULES USP 125 MG [Suspect]
     Active Substance: VANCOMYCIN HYDROCHLORIDE
     Indication: PRODUCT USED FOR UNKNOWN INDICATION
     Dosage: 125 MG, QID
     Route: 065

REACTIONS (8)
  - Heart rate increased [Unknown]
  - Flatulence [Unknown]
  - Asthenia [Unknown]
  - Faecal volume increased [Unknown]
  - Dyspnoea [Unknown]
  - Mucous stools [Unknown]
  - Pyrexia [Unknown]
  - Hyperphagia [Unknown]

NARRATIVE: CASE EVENT DATE: 20171119
